FAERS Safety Report 16584260 (Version 6)
Quarter: 2022Q1

REPORT INFORMATION
  Report Type: Spontaneous
  Country: GB (occurrence: GB)
  Receive Date: 20190717
  Receipt Date: 20220314
  Transmission Date: 20220423
  Serious: Yes (Life-Threatening, Hospitalization, Disabling, Other)
  Sender: FDA-Public Use
  Company Number: GB-PFIZER INC-2011207736

PATIENT
  Age: 30 Year
  Sex: Female
  Weight: 63.5 kg

DRUGS (61)
  1. LORAZEPAM [Suspect]
     Active Substance: LORAZEPAM
     Indication: Sedation
     Dosage: 1 MG, 4X/DAY
     Route: 048
     Dates: start: 20110224, end: 20110410
  2. LORAZEPAM [Suspect]
     Active Substance: LORAZEPAM
     Indication: Muscle spasms
     Dosage: 1 MG, 4X/DAY
     Route: 048
     Dates: start: 20110523, end: 20110627
  3. LORAZEPAM [Suspect]
     Active Substance: LORAZEPAM
     Dosage: 1 MG, 4X/DAY
     Route: 048
     Dates: start: 20110725
  4. MIRTAZAPINE [Interacting]
     Active Substance: MIRTAZAPINE
     Indication: Depression
     Dosage: 30 MG, 1X/DAY
     Route: 048
     Dates: start: 20101007, end: 20101012
  5. MIRTAZAPINE [Interacting]
     Active Substance: MIRTAZAPINE
     Dosage: 30 MG, 1X/DAY
     Route: 048
  6. MIRTAZAPINE [Interacting]
     Active Substance: MIRTAZAPINE
     Dosage: 15 MG, 2X/DAY
     Route: 048
     Dates: start: 20100923, end: 20101108
  7. MIRTAZAPINE [Interacting]
     Active Substance: MIRTAZAPINE
     Dosage: 45 MG, DAILY (30MG IN THE DAY AND 15MG AT NIGHT)
     Dates: start: 20110224, end: 20110506
  8. PAROXETINE [Suspect]
     Active Substance: PAROXETINE
     Indication: Post-traumatic stress disorder
     Dosage: 60 MG, 1X/DAY
     Route: 048
     Dates: start: 19990801, end: 201105
  9. PAROXETINE [Suspect]
     Active Substance: PAROXETINE
     Indication: Depression
     Dosage: UNK
     Dates: start: 201012
  10. PAROXETINE [Suspect]
     Active Substance: PAROXETINE
     Dosage: 20 MG, 3X/DAY
     Route: 048
     Dates: start: 1997, end: 201105
  11. PAROXETINE [Suspect]
     Active Substance: PAROXETINE
     Dosage: 40 MG, 1X/DAY
     Dates: start: 201105, end: 20110706
  12. PAROXETINE [Suspect]
     Active Substance: PAROXETINE
     Dosage: 60 MG, 1X/DAY
     Route: 048
     Dates: start: 1997, end: 201105
  13. PAROXETINE [Suspect]
     Active Substance: PAROXETINE
     Dosage: 40 MG, 1X/DAY
     Dates: start: 19990801, end: 20110706
  14. PAROXETINE HYDROCHLORIDE [Interacting]
     Active Substance: PAROXETINE HYDROCHLORIDE
     Indication: Depression
     Dosage: 60 MG, 3X/DAY
     Route: 048
     Dates: start: 19990801, end: 201105
  15. PAROXETINE HYDROCHLORIDE [Interacting]
     Active Substance: PAROXETINE HYDROCHLORIDE
     Indication: Post-traumatic stress disorder
     Dosage: 40 MG, 1X/DAY
     Route: 048
     Dates: start: 201105, end: 20110706
  16. PAROXETINE HYDROCHLORIDE [Interacting]
     Active Substance: PAROXETINE HYDROCHLORIDE
     Dosage: UNK
     Route: 048
     Dates: start: 1999
  17. PAROXETINE HYDROCHLORIDE [Interacting]
     Active Substance: PAROXETINE HYDROCHLORIDE
     Dosage: UNK
     Route: 048
     Dates: start: 201012
  18. PAROXETINE HYDROCHLORIDE [Interacting]
     Active Substance: PAROXETINE HYDROCHLORIDE
     Dosage: 20 MG, 3X/DAY
     Dates: start: 19990801, end: 201105
  19. CLONAZEPAM [Interacting]
     Active Substance: CLONAZEPAM
     Indication: Sedation
     Dosage: UNK
     Route: 048
     Dates: start: 20110224, end: 20110410
  20. CLONAZEPAM [Interacting]
     Active Substance: CLONAZEPAM
     Dosage: UNK
     Route: 048
     Dates: start: 20110410
  21. PROCYCLIDINE [Interacting]
     Active Substance: PROCYCLIDINE
     Indication: Extrapyramidal disorder
     Dosage: 5 MG
     Route: 048
     Dates: start: 1995, end: 1996
  22. PROCYCLIDINE [Interacting]
     Active Substance: PROCYCLIDINE
     Indication: Psychotic disorder
     Dosage: 15 MG, 1X/DAY
     Route: 048
     Dates: start: 20110503, end: 20110510
  23. PROCYCLIDINE [Interacting]
     Active Substance: PROCYCLIDINE
     Indication: Oculogyric crisis
     Dosage: 20 MG
     Dates: start: 20110324, end: 20110506
  24. PROCYCLIDINE [Interacting]
     Active Substance: PROCYCLIDINE
     Dosage: UNK
     Dates: start: 20110415
  25. PROCYCLIDINE [Interacting]
     Active Substance: PROCYCLIDINE
     Dosage: 5 MG, 1X/DAY
     Dates: start: 20110503, end: 20110510
  26. OMEPRAZOLE [Interacting]
     Active Substance: OMEPRAZOLE
     Indication: Dyspepsia
     Dosage: 20 MG, 1X/DAY
     Route: 048
     Dates: start: 20110525
  27. QUETIAPINE [Interacting]
     Active Substance: QUETIAPINE
     Indication: Psychotic disorder
     Dosage: 300 MG, UNK
     Route: 048
     Dates: start: 20110224, end: 20110506
  28. TRAMADOL [Interacting]
     Active Substance: TRAMADOL
     Indication: Analgesic therapy
     Dosage: UNK
     Route: 048
     Dates: start: 20081201, end: 20101210
  29. TRAMADOL [Interacting]
     Active Substance: TRAMADOL
     Indication: Neck pain
  30. TRAMADOL [Interacting]
     Active Substance: TRAMADOL
     Indication: Back pain
  31. AMITRIPTYLINE [Interacting]
     Active Substance: AMITRIPTYLINE
     Indication: Muscle spasms
     Dosage: 25 MG, 1X/DAY AT NIGHT
     Dates: start: 20110810
  32. AMITRIPTYLINE [Interacting]
     Active Substance: AMITRIPTYLINE
     Indication: Neuralgia
  33. CODEINE [Interacting]
     Active Substance: CODEINE
     Indication: Analgesic therapy
     Dosage: UNK
     Route: 048
     Dates: start: 20110615, end: 20110723
  34. CODEINE [Interacting]
     Active Substance: CODEINE
     Dosage: UNK
     Route: 048
     Dates: start: 2002, end: 2002
  35. CODEINE [Interacting]
     Active Substance: CODEINE
     Dosage: UNK
     Route: 048
     Dates: start: 2008, end: 2008
  36. DOMPERIDONE [Interacting]
     Active Substance: DOMPERIDONE
     Dosage: UNK
  37. DIAZEPAM [Suspect]
     Active Substance: DIAZEPAM
     Indication: Muscle spasms
     Dosage: 5 MG, 4X/DAY
     Dates: start: 20110725
  38. DIAZEPAM [Suspect]
     Active Substance: DIAZEPAM
     Indication: Neuralgia
     Dosage: 2-2-4
  39. DIAZEPAM [Suspect]
     Active Substance: DIAZEPAM
     Indication: Depression
     Dosage: 8 MG, 1X/DAY
     Dates: start: 20110725
  40. DIAZEPAM [Suspect]
     Active Substance: DIAZEPAM
     Indication: Serotonin syndrome
     Dosage: 20 MG, 1X/DAY
     Dates: start: 20110725, end: 20110725
  41. PHOSPHORUS [Interacting]
     Active Substance: PHOSPHORUS
     Dosage: UNK
  42. AMITRIPTYLINE HYDROCHLORIDE [Suspect]
     Active Substance: AMITRIPTYLINE HYDROCHLORIDE
     Indication: Drug withdrawal syndrome
     Dosage: 25 MG, 1X/DAY (AT NIGHT)
  43. AMITRIPTYLINE HYDROCHLORIDE [Suspect]
     Active Substance: AMITRIPTYLINE HYDROCHLORIDE
     Indication: Neuralgia
  44. AMITRIPTYLINE HYDROCHLORIDE [Suspect]
     Active Substance: AMITRIPTYLINE HYDROCHLORIDE
     Indication: Muscle spasms
  45. AMITRIPTYLINE HYDROCHLORIDE [Suspect]
     Active Substance: AMITRIPTYLINE HYDROCHLORIDE
     Indication: Serotonin syndrome
  46. CODEINE PHOSPHATE [Suspect]
     Active Substance: CODEINE PHOSPHATE
     Indication: Analgesic therapy
     Dosage: UNK, 1X/DAY
     Route: 048
     Dates: start: 20110615, end: 20110723
  47. CODEINE PHOSPHATE [Suspect]
     Active Substance: CODEINE PHOSPHATE
     Indication: Serotonin syndrome
     Dosage: UNK
     Dates: start: 20110410, end: 20110424
  48. CODEINE PHOSPHATE [Suspect]
     Active Substance: CODEINE PHOSPHATE
     Dosage: UNK
     Route: 048
     Dates: start: 2008, end: 2008
  49. CODEINE PHOSPHATE [Suspect]
     Active Substance: CODEINE PHOSPHATE
     Dosage: UNK
     Route: 048
     Dates: start: 2002, end: 2002
  50. PROCYCLIDINE HYDROCHLORIDE [Suspect]
     Active Substance: PROCYCLIDINE HYDROCHLORIDE
     Indication: Oculogyric crisis
     Dosage: 20 MG
     Route: 048
     Dates: start: 20110324, end: 20110506
  51. PROCYCLIDINE HYDROCHLORIDE [Suspect]
     Active Substance: PROCYCLIDINE HYDROCHLORIDE
     Indication: Extrapyramidal disorder
     Dosage: UNK
     Dates: start: 20110415
  52. PROCYCLIDINE HYDROCHLORIDE [Suspect]
     Active Substance: PROCYCLIDINE HYDROCHLORIDE
     Dosage: 5 MG, 1X/DAY
     Route: 048
     Dates: start: 20110503, end: 20110510
  53. PROCYCLIDINE HYDROCHLORIDE [Suspect]
     Active Substance: PROCYCLIDINE HYDROCHLORIDE
     Dosage: 15 MG, 1X/DAY
     Dates: start: 20110503, end: 20110510
  54. PROCYCLIDINE HYDROCHLORIDE [Suspect]
     Active Substance: PROCYCLIDINE HYDROCHLORIDE
     Dosage: 5 MG, 1X/DAY
     Dates: start: 1995, end: 1996
  55. TRAMADOL HYDROCHLORIDE [Suspect]
     Active Substance: TRAMADOL HYDROCHLORIDE
     Indication: Analgesic therapy
     Dosage: 4 MG, 1X/DAY
     Route: 048
     Dates: start: 20081201, end: 20101201
  56. TRAMADOL HYDROCHLORIDE [Suspect]
     Active Substance: TRAMADOL HYDROCHLORIDE
     Indication: Back pain
     Dosage: UNK
     Route: 048
     Dates: start: 20080722
  57. TRAMADOL HYDROCHLORIDE [Suspect]
     Active Substance: TRAMADOL HYDROCHLORIDE
     Dosage: UNK
     Route: 044
     Dates: start: 1995, end: 1996
  58. TRAMADOL HYDROCHLORIDE [Suspect]
     Active Substance: TRAMADOL HYDROCHLORIDE
     Dosage: 8 MG (8 DF)
     Dates: start: 20110725
  59. TRAMADOL HYDROCHLORIDE [Suspect]
     Active Substance: TRAMADOL HYDROCHLORIDE
     Dosage: UNK
     Dates: start: 2008, end: 2009
  60. TRAMADOL HYDROCHLORIDE [Suspect]
     Active Substance: TRAMADOL HYDROCHLORIDE
     Dosage: UNK
     Route: 048
     Dates: start: 20080722
  61. TRAMADOL HYDROCHLORIDE [Suspect]
     Active Substance: TRAMADOL HYDROCHLORIDE
     Dosage: UNK

REACTIONS (86)
  - Maternal exposure during pregnancy [Unknown]
  - Agitation [Unknown]
  - Anxiety [Unknown]
  - Decreased appetite [Unknown]
  - Hallucinations, mixed [Unknown]
  - Blood sodium decreased [Unknown]
  - Cyanosis [Unknown]
  - Vision blurred [Unknown]
  - Contusion [Unknown]
  - Seizure [Unknown]
  - Delirium [Unknown]
  - Depression [Unknown]
  - Dissociation [Not Recovered/Not Resolved]
  - Diarrhoea [Unknown]
  - Dyspnoea [Unknown]
  - Disorientation [Not Recovered/Not Resolved]
  - Dizziness [Unknown]
  - Drooling [Unknown]
  - Drug interaction [Unknown]
  - Toxicity to various agents [Unknown]
  - Dyskinesia [Unknown]
  - Tinnitus [Unknown]
  - Emotional disorder [Unknown]
  - Swelling face [Unknown]
  - Feeling of despair [Unknown]
  - Derealisation [Not Recovered/Not Resolved]
  - Pyrexia [Unknown]
  - Gastric pH decreased [Unknown]
  - Headache [Unknown]
  - Heart rate increased [Unknown]
  - Incontinence [Not Recovered/Not Resolved]
  - Feeling jittery [Unknown]
  - Arthralgia [Unknown]
  - Sensory loss [Unknown]
  - Mania [Unknown]
  - Menstrual disorder [Unknown]
  - Disturbance in attention [Unknown]
  - Mood swings [Unknown]
  - Muscle disorder [Unknown]
  - Muscle spasms [Not Recovered/Not Resolved]
  - Neuroleptic malignant syndrome [Unknown]
  - Nightmare [Unknown]
  - Hypoaesthesia [Not Recovered/Not Resolved]
  - Eye pain [Unknown]
  - Paraesthesia [Unknown]
  - Pruritus [Unknown]
  - Psychotic disorder [Unknown]
  - Mydriasis [Unknown]
  - Restlessness [Unknown]
  - Schizophrenia [Unknown]
  - Serotonin syndrome [Not Recovered/Not Resolved]
  - Illness [Unknown]
  - Skin discolouration [Not Recovered/Not Resolved]
  - Sleep disorder [Unknown]
  - Aphasia [Not Recovered/Not Resolved]
  - Parosmia [Unknown]
  - Suicidal ideation [Not Recovered/Not Resolved]
  - Hyperhidrosis [Unknown]
  - H1N1 influenza [Unknown]
  - Tremor [Not Recovered/Not Resolved]
  - Balance disorder [Unknown]
  - Urinary retention [Unknown]
  - Visual impairment [Unknown]
  - Vomiting [Unknown]
  - Gait disturbance [Unknown]
  - Asthenia [Unknown]
  - Drug withdrawal syndrome [Unknown]
  - Dystonia [Unknown]
  - Eye pain [Unknown]
  - Feeling of body temperature change [Unknown]
  - Musculoskeletal stiffness [Unknown]
  - Hypoaesthesia oral [Unknown]
  - Pallor [Unknown]
  - Paralysis [Unknown]
  - Muscle rigidity [Unknown]
  - Swollen tongue [Unknown]
  - Tachycardia [Unknown]
  - Cogwheel rigidity [Unknown]
  - Fatigue [Unknown]
  - Premature labour [Unknown]
  - Muscle spasms [Unknown]
  - Speech disorder [Unknown]
  - Restless legs syndrome [Unknown]
  - Drug ineffective [Unknown]
  - Limb injury [Unknown]
  - Somnolence [Unknown]

NARRATIVE: CASE EVENT DATE: 20030101
